FAERS Safety Report 6646221-9 (Version None)
Quarter: 2010Q1

REPORT INFORMATION
  Report Type: 
  Country: None (occurrence: None)
  Receive Date: 20100322
  Receipt Date: 20100322
  Transmission Date: 20100710
  Serious: Yes (Other)
  Sender: FDA-Public Use
  Company Number: None

PATIENT
  Sex: Male
  Weight: 99.7913 kg

DRUGS (1)
  1. TIMOLOL MALEATE [Suspect]
     Indication: GLAUCOMA
     Dosage: 1 DROP 2/DAY EYE
     Route: 047
     Dates: start: 20080602, end: 20100110

REACTIONS (4)
  - EYE IRRITATION [None]
  - EYE PAIN [None]
  - MYOPIA [None]
  - PRODUCT QUALITY ISSUE [None]
